FAERS Safety Report 21179667 (Version 2)
Quarter: 2022Q3

REPORT INFORMATION
  Report Type: Report from Study
  Country: CN (occurrence: CN)
  Receive Date: 20220805
  Receipt Date: 20220812
  Transmission Date: 20221026
  Serious: Yes (Life-Threatening, Hospitalization)
  Sender: FDA-Public Use
  Company Number: CN-JNJFOC-20220726918

PATIENT
  Age: 70 Year
  Sex: Male
  Weight: 57 kg

DRUGS (26)
  1. AMIVANTAMAB [Suspect]
     Active Substance: AMIVANTAMAB
     Indication: Non-small cell lung cancer
     Route: 042
     Dates: start: 20220706, end: 20220707
  2. CARBOPLATIN [Suspect]
     Active Substance: CARBOPLATIN
     Indication: Non-small cell lung cancer
     Route: 042
     Dates: start: 20220705, end: 20220705
  3. PEMETREXED [Suspect]
     Active Substance: PEMETREXED
     Indication: Non-small cell lung cancer
     Route: 042
     Dates: start: 20220705, end: 20220705
  4. VALSARTAN CAPSULES [Concomitant]
     Indication: Hypertension
     Route: 048
     Dates: start: 19820101
  5. NIFEDIPINE CONTROLLED-RELEASE TABLETS [Concomitant]
     Indication: Hypertension
     Route: 048
     Dates: start: 19820101
  6. SITAGLIPTIN PHOSPHATE TABLETS [Concomitant]
     Indication: Diabetes mellitus
     Route: 048
     Dates: start: 20020101
  7. GLIMEPIRIDE [Concomitant]
     Active Substance: GLIMEPIRIDE
     Indication: Diabetes mellitus
     Route: 048
     Dates: start: 20020101
  8. ASPIRIN [Concomitant]
     Active Substance: ASPIRIN
     Indication: Arteriosclerosis coronary artery
     Route: 048
     Dates: start: 20200724
  9. ASPIRIN [Concomitant]
     Active Substance: ASPIRIN
     Indication: Aortic arteriosclerosis
  10. CLOPIDOGREL HYDROGEN [Concomitant]
     Indication: Arteriosclerosis coronary artery
     Route: 048
     Dates: start: 20200724
  11. CLOPIDOGREL HYDROGEN [Concomitant]
     Indication: Aortic arteriosclerosis
  12. BISOPROLOL FUMARATE [Concomitant]
     Active Substance: BISOPROLOL FUMARATE
     Indication: Hypertension
     Route: 048
     Dates: start: 20200724
  13. FINASTERIDE [Concomitant]
     Active Substance: FINASTERIDE
     Indication: Benign prostatic hyperplasia
     Route: 048
     Dates: start: 20200727
  14. DENOSUMAB INJECTION [Concomitant]
     Indication: Prophylaxis
     Route: 058
     Dates: start: 20210401
  15. ESTAZOLAM [Concomitant]
     Active Substance: ESTAZOLAM
     Indication: Sleep disorder therapy
     Route: 048
     Dates: start: 20220608, end: 20220703
  16. ESTAZOLAM [Concomitant]
     Active Substance: ESTAZOLAM
     Route: 048
     Dates: start: 20220704, end: 20220704
  17. LORATADINE [Concomitant]
     Active Substance: LORATADINE
     Indication: Rash
     Route: 048
     Dates: start: 20220704, end: 20220704
  18. PANTOPRAZOLE SODIUM [Concomitant]
     Active Substance: PANTOPRAZOLE SODIUM
     Indication: Gastrointestinal disorder therapy
     Route: 042
     Dates: start: 20220704, end: 20220708
  19. PANTOPRAZOLE SODIUM [Concomitant]
     Active Substance: PANTOPRAZOLE SODIUM
     Route: 042
     Dates: start: 20220712, end: 20220712
  20. PANTOPRAZOLE SODIUM [Concomitant]
     Active Substance: PANTOPRAZOLE SODIUM
     Route: 042
     Dates: start: 20220714, end: 20220719
  21. ONDANSETRON HYDROCHLORIDE INJECTION [Concomitant]
     Indication: Prophylaxis of nausea and vomiting
     Route: 042
     Dates: start: 20220705, end: 20220705
  22. FOSAPREPITANT DIMEGLUMINE [Concomitant]
     Active Substance: FOSAPREPITANT DIMEGLUMINE
     Indication: Prophylaxis of nausea and vomiting
     Route: 042
     Dates: start: 20220705, end: 20220705
  23. BIOSYNTHETIC HUMAN INSULIN INJECTION [Concomitant]
     Indication: Blood glucose increased
     Dosage: DOSAGE 4 (UNITS NOT PROVIDED)
     Route: 058
     Dates: start: 20220705, end: 20220705
  24. BIOSYNTHETIC HUMAN INSULIN INJECTION [Concomitant]
     Dosage: DOSE: ^40^ UNIT UNSPECIFIED
     Route: 050
     Dates: start: 20220712, end: 20220805
  25. NITROGLYCERIN TABLETS [Concomitant]
     Indication: Hypertension
     Route: 060
     Dates: start: 20220707, end: 20220707
  26. ACARBOSE [Concomitant]
     Active Substance: ACARBOSE
     Indication: Diabetes mellitus
     Route: 048
     Dates: start: 20020101

REACTIONS (4)
  - Myelosuppression [Not Recovered/Not Resolved]
  - Septic shock [Recovered/Resolved]
  - Cerebral infarction [Not Recovered/Not Resolved]
  - Gastrointestinal haemorrhage [Recovered/Resolved]

NARRATIVE: CASE EVENT DATE: 20220712
